FAERS Safety Report 25602066 (Version 2)
Quarter: 2025Q4

REPORT INFORMATION
  Report Type: Spontaneous
  Country: US (occurrence: US)
  Receive Date: 20250724
  Receipt Date: 20251217
  Transmission Date: 20260118
  Serious: Yes (Other)
  Sender: ELI LILLY AND COMPANY
  Company Number: US-ELI_LILLY_AND_COMPANY-US202507013514

PATIENT
  Age: 40 Year

DRUGS (1)
  1. MOUNJARO [Suspect]
     Active Substance: TIRZEPATIDE
     Indication: Product used for unknown indication
     Dosage: UNK UNK, UNKNOWN
     Route: 065
     Dates: start: 202307, end: 202405

REACTIONS (9)
  - Metabolic acidosis [Unknown]
  - Respiratory alkalosis [Unknown]
  - Hypophagia [Unknown]
  - Starvation [Unknown]
  - Impaired gastric emptying [Unknown]
  - Vomiting [Unknown]
  - Constipation [Unknown]
  - Abdominal distension [Unknown]
  - Nausea [Unknown]

NARRATIVE: CASE EVENT DATE: 20231101
